FAERS Safety Report 17120531 (Version 2)
Quarter: 2020Q3

REPORT INFORMATION
  Report Type: Spontaneous
  Country: FR (occurrence: FR)
  Receive Date: 20191206
  Receipt Date: 20200922
  Transmission Date: 20201102
  Serious: Yes (Other)
  Sender: FDA-Public Use
  Company Number: FR-UCBSA-2019051938

PATIENT
  Age: 75 Year
  Sex: Female

DRUGS (7)
  1. CORTANCYL [Suspect]
     Active Substance: PREDNISONE
     Indication: PREMEDICATION
     Dosage: 1 DOSAGE FORM, TOTAL
     Route: 048
     Dates: start: 20190918
  2. AVASTIN [Suspect]
     Active Substance: BEVACIZUMAB
     Indication: BREAST CANCER
     Dosage: 550 MILLIGRAM,ACCORDING TO THE CYCLE
     Route: 041
     Dates: start: 20190918
  3. ZOPHREN [ONDANSETRON HYDROCHLORIDE] [Suspect]
     Active Substance: ONDANSETRON
     Indication: PREMEDICATION
     Dosage: 1 DOSAGE FORM, TOTAL
     Route: 048
     Dates: start: 20190918
  4. PACLITAXEL. [Suspect]
     Active Substance: PACLITAXEL
     Indication: BREAST CANCER
     Dosage: 96 MG IV
     Route: 041
     Dates: start: 20190918
  5. XYZALL [Suspect]
     Active Substance: LEVOCETIRIZINE DIHYDROCHLORIDE
     Indication: PREMEDICATION
     Dosage: 1 DOSAGE FORM, TOTAL
     Route: 048
     Dates: start: 20190918
  6. AZANTAC [Suspect]
     Active Substance: RANITIDINE HYDROCHLORIDE
     Indication: PREMEDICATION
     Dosage: 1 DOSAGE FORM, TOTAL
     Route: 048
     Dates: start: 20190918
  7. PRIMPERAN [Suspect]
     Active Substance: METOCLOPRAMIDE HYDROCHLORIDE
     Indication: NAUSEA
     Dosage: UNK
     Route: 048

REACTIONS (4)
  - Back pain [Recovered/Resolved]
  - Nausea [Recovered/Resolved]
  - Pyrexia [Recovered/Resolved]
  - Vomiting [Recovered/Resolved]

NARRATIVE: CASE EVENT DATE: 20190918
